FAERS Safety Report 19269265 (Version 1)
Quarter: 2021Q2

REPORT INFORMATION
  Report Type: Spontaneous
  Country: FR (occurrence: FR)
  Receive Date: 20210517
  Receipt Date: 20210517
  Transmission Date: 20210717
  Serious: Yes (Hospitalization)
  Sender: FDA-Public Use
  Company Number: FR-ELI_LILLY_AND_COMPANY-FR202105002113

PATIENT
  Age: 46 Year
  Sex: Female

DRUGS (1)
  1. VERZENIOS [Suspect]
     Active Substance: ABEMACICLIB
     Indication: NEOPLASM MALIGNANT
     Route: 048
     Dates: start: 20210405

REACTIONS (4)
  - General physical health deterioration [Not Recovered/Not Resolved]
  - Decreased appetite [Not Recovered/Not Resolved]
  - Diarrhoea [Not Recovered/Not Resolved]
  - Neutropenia [Not Recovered/Not Resolved]

NARRATIVE: CASE EVENT DATE: 20210415
